FAERS Safety Report 9051149 (Version 8)
Quarter: 2013Q4

REPORT INFORMATION
  Report Type: Spontaneous
  Country: US (occurrence: US)
  Receive Date: 20130206
  Receipt Date: 20131004
  Transmission Date: 20140711
  Serious: Yes (Other)
  Sender: FDA-Public Use
  Company Number: US-PFIZER INC-2013044265

PATIENT
  Age: 70 Year
  Sex: Male
  Weight: 72.56 kg

DRUGS (5)
  1. SUTENT [Suspect]
     Indication: GASTROINTESTINAL STROMAL TUMOUR
     Dosage: 50 MG, CYCLIC (1X/DAY, 4 WEEKS ON/2 WEEKS OFF)
     Dates: start: 20130202
  2. LEVOTHYROXINE [Concomitant]
     Dosage: UNK
  3. DOXAZOSIN [Concomitant]
     Dosage: UNK
  4. VICODIN [Concomitant]
     Dosage: UNK
  5. LOVENOX [Concomitant]

REACTIONS (22)
  - Thrombosis [Unknown]
  - Dysgeusia [Unknown]
  - Oral pain [Unknown]
  - Glossodynia [Unknown]
  - Stomatitis [Unknown]
  - Fatigue [Unknown]
  - Cough [Unknown]
  - Abdominal distension [Unknown]
  - Pain [Recovered/Resolved]
  - Joint swelling [Unknown]
  - Local swelling [Unknown]
  - Pain in extremity [Unknown]
  - Arthralgia [Unknown]
  - Pain [Unknown]
  - Pruritus [Not Recovered/Not Resolved]
  - Urticaria [Recovered/Resolved]
  - Disease progression [Unknown]
  - Gastrointestinal stromal tumour [Unknown]
  - Joint stiffness [Not Recovered/Not Resolved]
  - Hypoaesthesia [Not Recovered/Not Resolved]
  - Back pain [Unknown]
  - Pain in extremity [Not Recovered/Not Resolved]
